FAERS Safety Report 8290772-0 (Version None)
Quarter: 2012Q2

REPORT INFORMATION
  Report Type: 
  Country: None (occurrence: None)
  Receive Date: 20120413
  Receipt Date: 20120413
  Transmission Date: 20120825
  Serious: Yes (Life-Threatening, Other)
  Sender: FDA-Public Use
  Company Number: None

PATIENT
  Sex: Male
  Weight: 88.4514 kg

DRUGS (4)
  1. SILDENAFIL [Suspect]
  2. PAPAVERINE [Suspect]
     Indication: ERECTILE DYSFUNCTION
     Dosage: 125 MG 1 EVERY 6 MOS.
     Dates: start: 20120309
  3. PHENTOLAMINE MESYLATE [Suspect]
  4. ALPROSTADIL [Suspect]
     Indication: ERECTILE DYSFUNCTION
     Dosage: 150 MG 1 AS NEEDED
     Dates: start: 20100901

REACTIONS (10)
  - LOSS OF CONSCIOUSNESS [None]
  - DIZZINESS [None]
  - ANGINA PECTORIS [None]
  - VISION BLURRED [None]
  - SCAR [None]
  - PALPITATIONS [None]
  - HEADACHE [None]
  - CONVULSION [None]
  - FALL [None]
  - MYOCARDIAL INFARCTION [None]
